FAERS Safety Report 4859660-3 (Version None)
Quarter: 2005Q4

REPORT INFORMATION
  Report Type: 
  Country: None (occurrence: None)
  Receive Date: 20051215
  Receipt Date: 20051206
  Transmission Date: 20060501
  Serious: Yes (Life-Threatening, Hospitalization)
  Sender: FDA-Public Use
  Company Number: 2005-07-1998

PATIENT
  Age: 56 Year
  Sex: Female
  Weight: 37 kg

DRUGS (11)
  1. REBETOL [Suspect]
     Indication: HEPATITIS C
     Dosage: 400 MG ORAL
     Route: 048
     Dates: start: 20050715, end: 20050723
  2. INTRON A [Suspect]
     Indication: HEPATITIS C
     Dosage: 3-6 MIU QD* INTRAMUSCULAR
     Route: 030
     Dates: start: 20050715, end: 20050716
  3. INTRON A [Suspect]
     Indication: HEPATITIS C
     Dosage: 3-6 MIU QD* INTRAMUSCULAR
     Route: 030
     Dates: start: 20050718, end: 20050721
  4. INTRON A [Suspect]
     Indication: HEPATITIS C
     Dosage: 3-6 MIU QD* INTRAMUSCULAR
     Route: 030
     Dates: start: 20050722, end: 20050723
  5. WARFARIN SODIUM [Suspect]
     Indication: PORTAL VEIN THROMBOSIS
     Dosage: 1 MG ORAL
     Route: 048
     Dates: start: 20050531, end: 20050723
  6. BUFFERIN [Suspect]
     Indication: POSTOPERATIVE CARE
     Dosage: 81 MG ORAL
     Route: 048
     Dates: start: 20050607, end: 20050607
  7. BUFFERIN [Suspect]
     Indication: SPLENECTOMY
     Dosage: 81 MG ORAL
     Route: 048
     Dates: start: 20050607, end: 20050607
  8. PROGRAF [Concomitant]
  9. ZOVIRAX [Concomitant]
  10. OMEPRAL (OMEPRAZOLE) TABLETS [Concomitant]
  11. INSULIN [Concomitant]

REACTIONS (10)
  - BLOOD DISORDER [None]
  - BRAIN OEDEMA [None]
  - CEREBRAL HAEMORRHAGE [None]
  - HAEMATOMA [None]
  - HYDROCEPHALUS [None]
  - IIIRD NERVE PARALYSIS [None]
  - LOSS OF CONSCIOUSNESS [None]
  - MOVEMENT DISORDER [None]
  - MYDRIASIS [None]
  - SPEECH DISORDER [None]
